FAERS Safety Report 25446958 (Version 1)
Quarter: 2025Q2

REPORT INFORMATION
  Report Type: Spontaneous
  Country: US (occurrence: US)
  Receive Date: 20250617
  Receipt Date: 20250617
  Transmission Date: 20250716
  Serious: Yes (Hospitalization, Other)
  Sender: SANOFI AVENTIS
  Company Number: US-SA-2025SA168088

PATIENT
  Age: 9 Year
  Sex: Male

DRUGS (13)
  1. CLOLAR [Suspect]
     Active Substance: CLOFARABINE
     Indication: Histiocytic sarcoma
     Dosage: 32.5 MG, QD
     Route: 042
     Dates: start: 20250502, end: 20250506
  2. ULIXERTINIB [Concomitant]
     Active Substance: ULIXERTINIB
     Indication: Histiocytic sarcoma
     Dosage: 300 MG, BID
     Route: 048
     Dates: start: 20250408, end: 20250515
  3. DEXAMETHASONE [Concomitant]
     Active Substance: DEXAMETHASONE
     Indication: Swelling
     Dates: start: 20250116
  4. FUROSEMIDE [Concomitant]
     Active Substance: FUROSEMIDE
     Indication: Fluid retention
     Dates: start: 20250502
  5. XARELTO [Concomitant]
     Active Substance: RIVAROXABAN
     Indication: Thrombosis
  6. SODIUM CHLORIDE [Concomitant]
     Active Substance: SODIUM CHLORIDE
     Dosage: 1000 MG, TID
  7. GABAPENTIN [Concomitant]
     Active Substance: GABAPENTIN
     Dosage: 200 MG, TID
  8. AMLODIPINE [Concomitant]
     Active Substance: AMLODIPINE BESYLATE
     Dosage: 5 MG, BID
  9. LABETALOL [Concomitant]
     Active Substance: LABETALOL
     Dosage: 100 MG, BID
  10. SERTRALINE HYDROCHLORIDE [Concomitant]
     Active Substance: SERTRALINE HYDROCHLORIDE
     Dosage: 50 MG, QD
  11. PEPCID [Concomitant]
     Active Substance: FAMOTIDINE
  12. BACTRIM [Concomitant]
     Active Substance: SULFAMETHOXAZOLE\TRIMETHOPRIM
  13. AMLODIPINE [Concomitant]
     Active Substance: AMLODIPINE BESYLATE
     Dosage: 5 MG, BID

REACTIONS (13)
  - Febrile neutropenia [Not Recovered/Not Resolved]
  - Enterocolitis infectious [Not Recovered/Not Resolved]
  - Oxygen consumption increased [Unknown]
  - Oxygen saturation decreased [Unknown]
  - Facial pain [Unknown]
  - Condition aggravated [Unknown]
  - Cough [Unknown]
  - Pyrexia [Unknown]
  - Dyspnoea [Unknown]
  - Tachypnoea [Unknown]
  - Diarrhoea [Unknown]
  - Epistaxis [Unknown]
  - Condition aggravated [Unknown]

NARRATIVE: CASE EVENT DATE: 20250101
